FAERS Safety Report 9624882 (Version 1)
Quarter: 2013Q4

REPORT INFORMATION
  Report Type: Spontaneous
  Country: JP (occurrence: JP)
  Receive Date: 20131016
  Receipt Date: 20131016
  Transmission Date: 20140711
  Serious: Yes (Other)
  Sender: FDA-Public Use
  Company Number: JP-PFIZER INC-2013289854

PATIENT
  Age: 10 Month
  Sex: Male

DRUGS (3)
  1. METHYLPREDNISOLONE SODIUM SUCCINATE [Suspect]
     Indication: KAWASAKI^S DISEASE
     Dosage: 30 MG/KG/DAY (1000 MG AT THE MAXIMUM) VIA INTRAVENOUS DRIP INFUSION OVER 2 HOURS FOR 3 CONSECUTIVE D
     Route: 041
  2. ACETYLSALICYLIC ACID [Concomitant]
     Dosage: 30 MG/KG, 1X/DAY
  3. FROBEN [Concomitant]

REACTIONS (1)
  - Haematochezia [Recovering/Resolving]
